FAERS Safety Report 8427715-2 (Version None)
Quarter: 2012Q2

REPORT INFORMATION
  Report Type: 
  Country: None (occurrence: None)
  Receive Date: 20120611
  Receipt Date: 20120601
  Transmission Date: 20120825
  Serious: Yes (Death, Hospitalization)
  Sender: FDA-Public Use
  Company Number: GB-TEVA-339222ISR

PATIENT
  Age: 22 Year
  Sex: Female

DRUGS (1)
  1. LEVONORGESTREL [Suspect]
     Indication: PRODUCT USED FOR UNKNOWN INDICATION
     Route: 048
     Dates: start: 20120501, end: 20120501

REACTIONS (16)
  - MULTI-ORGAN FAILURE [None]
  - PAROTID GLAND ENLARGEMENT [None]
  - LYMPHADENOPATHY [None]
  - INFLUENZA LIKE ILLNESS [None]
  - TONSILLAR HYPERTROPHY [None]
  - DIZZINESS [None]
  - FATIGUE [None]
  - EYE SWELLING [None]
  - SEPSIS [None]
  - JUGULAR VEIN THROMBOSIS [None]
  - NAUSEA [None]
  - LEMIERRE SYNDROME [None]
  - CAVERNOUS SINUS THROMBOSIS [None]
  - EYE DISCHARGE [None]
  - PERITONSILLAR ABSCESS [None]
  - BODY TEMPERATURE INCREASED [None]
